FAERS Safety Report 24347084 (Version 2)
Quarter: 2024Q4

REPORT INFORMATION
  Report Type: Spontaneous
  Country: US (occurrence: US)
  Receive Date: 20240921
  Receipt Date: 20241116
  Transmission Date: 20250115
  Serious: Yes (Death, Hospitalization, Other)
  Sender: UNITED THERAPEUTICS
  Company Number: US-UNITED THERAPEUTICS-UNT-2024-025240

PATIENT
  Sex: Male

DRUGS (2)
  1. REMODULIN [Suspect]
     Active Substance: TREPROSTINIL
     Indication: Pulmonary arterial hypertension
     Dosage: 0.09172 ?G/KG, CONTINUING
  2. REMODULIN [Suspect]
     Active Substance: TREPROSTINIL
     Dosage: UNK, CONTINUING

REACTIONS (15)
  - General physical health deterioration [Fatal]
  - Pulmonary arterial hypertension [Unknown]
  - Dyspnoea [Not Recovered/Not Resolved]
  - Malaise [Unknown]
  - Device malfunction [Recovered/Resolved]
  - Atrial fibrillation [Unknown]
  - Treatment noncompliance [Unknown]
  - Product use issue [Unknown]
  - Infusion site haemorrhage [Unknown]
  - Device occlusion [Unknown]
  - Device issue [Recovered/Resolved]
  - Right atrial pressure increased [Unknown]
  - Right ventricular systolic pressure increased [Unknown]
  - Device issue [Recovered/Resolved]
  - Device leakage [Unknown]

NARRATIVE: CASE EVENT DATE: 20240101
